FAERS Safety Report 20678082 (Version 5)
Quarter: 2022Q3

REPORT INFORMATION
  Report Type: Spontaneous
  Country: JP (occurrence: JP)
  Receive Date: 20220406
  Receipt Date: 20220701
  Transmission Date: 20221027
  Serious: Yes (Other)
  Sender: FDA-Public Use
  Company Number: JP-ASTELLAS-2022JP005332

PATIENT
  Age: 72 Year
  Sex: Female

DRUGS (1)
  1. PADCEV [Suspect]
     Active Substance: ENFORTUMAB VEDOTIN-EJFV
     Indication: Transitional cell carcinoma
     Dosage: 1 MG/KG, ONCE WEEKLY, ADMINISTRATION FOR 3 WEEKS AND INTERRUPTION FOR WEEK 4
     Route: 041
     Dates: start: 20220105

REACTIONS (3)
  - Myelosuppression [Recovered/Resolved]
  - Alopecia [Recovering/Resolving]
  - Taste disorder [Recovering/Resolving]

NARRATIVE: CASE EVENT DATE: 20220316
